FAERS Safety Report 10159783 (Version 1)
Quarter: 2014Q2

REPORT INFORMATION
  Report Type: Spontaneous
  Country: US (occurrence: US)
  Receive Date: 20140508
  Receipt Date: 20140508
  Transmission Date: 20141212
  Serious: No
  Sender: FDA-Public Use
  Company Number: US-GLAXOSMITHKLINE-A1027720A

PATIENT
  Sex: Female

DRUGS (1)
  1. TYKERB [Suspect]
     Indication: BREAST CANCER METASTATIC
     Dosage: 1000MG PER DAY
     Route: 048

REACTIONS (6)
  - Dizziness [Unknown]
  - Rash [Recovered/Resolved]
  - Acne [Recovered/Resolved]
  - Rash pruritic [Recovered/Resolved]
  - Facial pain [Recovering/Resolving]
  - Sunburn [Recovering/Resolving]
